FAERS Safety Report 23654485 (Version 1)
Quarter: 2024Q1

REPORT INFORMATION
  Report Type: Spontaneous
  Country: US (occurrence: None)
  Receive Date: 20240320
  Receipt Date: 20240320
  Transmission Date: 20240410
  Serious: Yes (Hospitalization)
  Sender: FDA-Public Use
  Company Number: None

PATIENT
  Sex: Female

DRUGS (8)
  1. AUBAGIO [Suspect]
     Active Substance: TERIFLUNOMIDE
     Indication: Multiple sclerosis
     Dosage: FREQUENCY : DAILY;?
     Route: 048
     Dates: start: 202308
  2. FUROSEMIDE [Concomitant]
     Active Substance: FUROSEMIDE
  3. BACLOFEN [Concomitant]
     Active Substance: BACLOFEN
  4. CARBAMAZEPINE [Concomitant]
     Active Substance: CARBAMAZEPINE
  5. CLONAZEPAM [Concomitant]
     Active Substance: CLONAZEPAM
  6. CELEBREX [Concomitant]
     Active Substance: CELECOXIB
  7. AMLODIPINE BESYLATE [Concomitant]
     Active Substance: AMLODIPINE BESYLATE
  8. LISINOPRIL [Concomitant]
     Active Substance: LISINOPRIL

REACTIONS (3)
  - Blood pressure increased [None]
  - Arthralgia [None]
  - Back pain [None]
